FAERS Safety Report 12302658 (Version 1)
Quarter: 2016Q2

REPORT INFORMATION
  Report Type: Spontaneous
  Country: US (occurrence: US)
  Receive Date: 20160425
  Receipt Date: 20160425
  Transmission Date: 20160815
  Serious: No
  Sender: FDA-Public Use
  Company Number: US-SA-2015SA213286

PATIENT
  Age: 52 Year
  Sex: Female

DRUGS (1)
  1. ENOXAPARIN SODIUM - WINTHROP [Suspect]
     Active Substance: ENOXAPARIN SODIUM
     Indication: OVARIAN VEIN THROMBOSIS
     Route: 065
     Dates: start: 20151208

REACTIONS (1)
  - Cold sweat [Unknown]

NARRATIVE: CASE EVENT DATE: 201512
